FAERS Safety Report 21510572 (Version 1)
Quarter: 2022Q4

REPORT INFORMATION
  Report Type: Spontaneous
  Country: FR (occurrence: FR)
  Receive Date: 20221026
  Receipt Date: 20221026
  Transmission Date: 20230113
  Serious: No
  Sender: FDA-Public Use
  Company Number: FR-VER-202200078

PATIENT
  Age: 70 Year
  Sex: Male

DRUGS (1)
  1. TRIPTORELIN [Suspect]
     Active Substance: TRIPTORELIN
     Indication: Prostate cancer
     Route: 058
     Dates: start: 202102

REACTIONS (1)
  - Axonal neuropathy [Not Recovered/Not Resolved]
